FAERS Safety Report 7087864 (Version 3)
Quarter: 2012Q4

REPORT INFORMATION
  Report Type: 
  Country: US (occurrence: US)
  Receive Date: 20090821
  Receipt Date: 20121213
  Transmission Date: 20130627
  Serious: Yes (Disabling, Other)
  Sender: FDA-Public Use
  Company Number: US-BAYER-200930003NA

PATIENT
  Age: 71 Year
  Sex: Male
  Weight: 65.31 kg

DRUGS (23)
  1. MAGNEVIST [Suspect]
     Indication: MRI ANGIOGRAPHY
     Dosage: UNK
     Dates: start: 20020108, end: 20020108
  2. MAGNEVIST [Suspect]
     Indication: MRI BRAIN
     Dosage: UNK
     Dates: start: 20030725, end: 20030725
  3. OMNISCAN [Suspect]
     Indication: PRODUCT USED FOR UNKNOWN INDICATION
     Dosage: 20 ml, UNK
     Dates: start: 20030724, end: 20030724
  4. OMNISCAN [Suspect]
     Indication: MRI ANGIOGRAPHY
     Dosage: 20 ml, UNK
     Dates: start: 20030801, end: 20030801
  5. OMNISCAN [Suspect]
     Indication: MRI BRAIN
  6. GADOLINIUM [Suspect]
     Indication: MRI ANGIOGRAPHY
  7. GADOLINIUM [Suspect]
     Indication: PRODUCT USED FOR UNKNOWN INDICATION
  8. PHOSLO [Concomitant]
     Dosage: 1134 mg, BID
  9. IMDUR [Concomitant]
     Indication: CARDIAC DISORDER
     Dosage: 60 mg, QD
  10. KEPPRA [Concomitant]
     Indication: CONVULSION PROPHYLAXIS
     Dosage: 250 every 12 hours
  11. TOPROL-XL [Concomitant]
     Indication: HYPERTENSION
     Dosage: 75 mg, BID
  12. OMEPRAZOLE [Concomitant]
     Dosage: 20 mg, QD
  13. PREDNISONE [Concomitant]
     Indication: INFLAMMATION
     Dosage: 4 mg, QD
  14. SIMVASTATIN [Concomitant]
     Dosage: 20 mg, QD
  15. ALBUTEROL [Concomitant]
     Route: 055
  16. BACID [Concomitant]
     Dosage: 1 cap BID
  17. EPOGEN [Concomitant]
     Dosage: 15000U with dialysis weekly
  18. FOSRENOL [Concomitant]
     Dosage: 1000 mg, TID
  19. CARDIZEM [Concomitant]
     Indication: HYPERTENSION
     Dosage: 180 mg, UNK
  20. ZOCOR [Concomitant]
     Indication: CHOLESTEROL TOTAL ABNORMAL NOS
     Dosage: 20 mg, QD
  21. CYTOXAN [Concomitant]
     Indication: RENAL FAILURE
     Route: 042
  22. CONTRAST MEDIA [Concomitant]
     Indication: COMPUTERIZED TOMOGRAM ABDOMEN
     Dosage: UNK
     Dates: start: 20030725, end: 20030725
  23. CONTRAST MEDIA [Concomitant]
     Indication: COMPUTERIZED TOMOGRAM THORAX

REACTIONS (10)
  - Nephrogenic systemic fibrosis [Not Recovered/Not Resolved]
  - Pain [Not Recovered/Not Resolved]
  - Skin hypertrophy [Not Recovered/Not Resolved]
  - Joint contracture [Not Recovered/Not Resolved]
  - Joint stiffness [Not Recovered/Not Resolved]
  - Joint range of motion decreased [Not Recovered/Not Resolved]
  - Physical disability [Not Recovered/Not Resolved]
  - Skin tightness [Not Recovered/Not Resolved]
  - Muscle rigidity [Not Recovered/Not Resolved]
  - Haemodialysis [None]
